FAERS Safety Report 8054734-0 (Version None)
Quarter: 2012Q1

REPORT INFORMATION
  Report Type: 
  Country: None (occurrence: None)
  Receive Date: 20120119
  Receipt Date: 20120105
  Transmission Date: 20120608
  Serious: Yes (Death, Hospitalization, Other)
  Sender: FDA-Public Use
  Company Number: PL-RANBAXY-2012R1-51736

PATIENT
  Age: 49 Year
  Sex: Male

DRUGS (6)
  1. COLCHICINE [Suspect]
     Indication: PRODUCT USED FOR UNKNOWN INDICATION
     Dosage: UNK
     Route: 065
  2. INDAPAMIDE [Suspect]
     Indication: PRODUCT USED FOR UNKNOWN INDICATION
     Dosage: UNK
     Route: 065
  3. DILTIAZEM HCL [Suspect]
     Indication: PRODUCT USED FOR UNKNOWN INDICATION
     Dosage: UNK
     Route: 065
  4. ENALAPRIL MALEATE [Suspect]
     Indication: PRODUCT USED FOR UNKNOWN INDICATION
     Dosage: UNK
     Route: 065
  5. KETOPROFEN [Suspect]
     Indication: PRODUCT USED FOR UNKNOWN INDICATION
     Dosage: UNK
     Route: 065
  6. DICLOFENAC [Suspect]
     Indication: PRODUCT USED FOR UNKNOWN INDICATION
     Dosage: UNK
     Route: 065

REACTIONS (9)
  - DIARRHOEA [None]
  - TOXICITY TO VARIOUS AGENTS [None]
  - MULTIPLE DRUG OVERDOSE [None]
  - DISSEMINATED INTRAVASCULAR COAGULATION [None]
  - VOMITING [None]
  - NAUSEA [None]
  - MULTI-ORGAN FAILURE [None]
  - RESPIRATORY DISTRESS [None]
  - CARDIOGENIC SHOCK [None]
